FAERS Safety Report 6750004-9 (Version None)
Quarter: 2010Q2

REPORT INFORMATION
  Report Type: 
  Country: None (occurrence: None)
  Receive Date: 20100601
  Receipt Date: 20100521
  Transmission Date: 20101027
  Serious: Yes (Life-Threatening)
  Sender: FDA-Public Use
  Company Number: GXKR2010GB05786

PATIENT
  Age: 22 Year
  Sex: Female
  Weight: 27.18 kg

DRUGS (7)
  1. RIFAMPICIN [Suspect]
     Indication: TUBERCULOSIS
     Dosage: 600 MG
     Route: 048
     Dates: start: 20100407, end: 20100417
  2. ADCAL-D3 [Concomitant]
  3. ETHAMBUTOL HYDROCHLORIDE [Concomitant]
  4. ISONIAZID [Concomitant]
  5. MOXIFLOXACIN HYDROCHLORIDE [Concomitant]
  6. ONDANSETRON [Concomitant]
  7. PYRAZINAMIDE [Concomitant]

REACTIONS (1)
  - NEUTROPENIC SEPSIS [None]
